FAERS Safety Report 6267246-1 (Version None)
Quarter: 2009Q3

REPORT INFORMATION
  Report Type: 
  Country: None (occurrence: None)
  Receive Date: 20090714
  Receipt Date: 20090623
  Transmission Date: 20100115
  Serious: Yes (Other)
  Sender: FDA-Public Use
  Company Number: JP-PFIZER INC-2009232841

PATIENT
  Age: 54 Year

DRUGS (21)
  1. ZOLOFT [Suspect]
     Indication: DEPRESSED MOOD
     Dosage: UNK MG, UNK
     Route: 048
     Dates: start: 20090526, end: 20090615
  2. SOLANAX [Suspect]
     Dosage: 0.4 MG, 2X/DAY
     Route: 048
     Dates: start: 20090526, end: 20090615
  3. SERENACE [Concomitant]
     Dosage: UNK
     Route: 048
     Dates: start: 20031208
  4. DOGMATYL [Concomitant]
     Dosage: UNK
     Route: 048
     Dates: start: 20051104
  5. TELESMIN [Concomitant]
     Dosage: UNK
     Route: 048
     Dates: start: 20041227
  6. DEPAKENE [Concomitant]
     Dosage: UNK
     Route: 048
     Dates: start: 20031208
  7. RIVOTRIL [Concomitant]
     Dosage: UNK
     Route: 048
     Dates: start: 20031208
  8. ALEVIATIN [Concomitant]
     Dosage: UNK
     Route: 048
  9. ARTANE [Concomitant]
     Dosage: UNK
     Route: 048
     Dates: start: 20031208
  10. AKINETON [Concomitant]
     Dosage: UNK
     Route: 048
     Dates: start: 20071224
  11. MUCOSTA [Concomitant]
     Dosage: UNK
     Route: 048
     Dates: start: 20031208
  12. MAGNESIUM CARBONATE [Concomitant]
     Dosage: UNK
     Route: 048
     Dates: start: 20031208
  13. CEPHADOL [Concomitant]
     Dosage: UNK
     Route: 048
     Dates: start: 20070912
  14. DIHYDROERGOTAMINE MESYLATE [Concomitant]
     Dosage: UNK
     Route: 048
     Dates: start: 20071201
  15. LASIX [Concomitant]
     Dosage: UNK
     Route: 048
     Dates: start: 20050124
  16. EPLERENONE [Concomitant]
     Dosage: UNK
     Route: 048
     Dates: start: 20080701
  17. EURODIN [Concomitant]
     Dosage: UNK
     Route: 048
     Dates: start: 20050829
  18. HALCION [Concomitant]
     Dosage: UNK
     Route: 048
     Dates: start: 20031208
  19. BENZALIN [Concomitant]
     Dosage: UNK
     Route: 048
     Dates: start: 20031208
  20. PURSENNID [Concomitant]
     Dosage: UNK
     Route: 048
     Dates: start: 20031208
  21. MAGNESIUM OXIDE [Concomitant]
     Dosage: UNK

REACTIONS (3)
  - NEUROGENIC BLADDER [None]
  - URETHRAL INJURY [None]
  - URINARY RETENTION [None]
